FAERS Safety Report 22325596 (Version 1)
Quarter: 2023Q2

REPORT INFORMATION
  Report Type: Spontaneous
  Country: US (occurrence: US)
  Receive Date: 20230516
  Receipt Date: 20230516
  Transmission Date: 20230721
  Serious: No
  Sender: FDA-Public Use
  Company Number: US-BIOGEN-2023BI01205192

PATIENT
  Sex: Female

DRUGS (6)
  1. VUMERITY [Suspect]
     Active Substance: DIROXIMEL FUMARATE
     Indication: Multiple sclerosis
     Route: 050
     Dates: start: 20210622
  2. ASPIRIN [Concomitant]
     Active Substance: ASPIRIN
     Route: 050
  3. METOPROLOL [Concomitant]
     Active Substance: METOPROLOL
     Route: 050
  4. PRAVASTATIN [Concomitant]
     Active Substance: PRAVASTATIN
     Route: 050
  5. GABAPENTIN [Concomitant]
     Active Substance: GABAPENTIN
     Route: 050
  6. AMANTADINE [Concomitant]
     Active Substance: AMANTADINE
     Route: 050

REACTIONS (3)
  - Gait disturbance [Unknown]
  - Mobility decreased [Unknown]
  - Diarrhoea [Unknown]
